FAERS Safety Report 26081871 (Version 1)
Quarter: 2025Q4

REPORT INFORMATION
  Report Type: Spontaneous
  Country: US (occurrence: US)
  Receive Date: 20251124
  Receipt Date: 20251124
  Transmission Date: 20260117
  Serious: No
  Sender: ALVOGEN
  Company Number: US-ALVOGEN-2024095899

PATIENT
  Sex: Female

DRUGS (3)
  1. TERIPARATIDE [Suspect]
     Active Substance: TERIPARATIDE
     Indication: Osteoporosis
     Dosage: PEN3, PREVIOUS PEN?EXP. DATE: JUL-2025?STRENGTH: 250UG/ML
  2. TERIPARATIDE [Suspect]
     Active Substance: TERIPARATIDE
     Indication: Osteoporosis
     Dosage: PEN 2, PREVIOUS PEN?EXP. DATE: JUL-2025?STRENGTH: 250UG/ML
  3. TERIPARATIDE [Suspect]
     Active Substance: TERIPARATIDE
     Indication: Osteoporosis
     Dosage: PEN 1, EXP DATE:JUL2025?STRENGTH: 250UG/ML?S/N:051456718956?GTIN:00347781652890
     Dates: start: 202411

REACTIONS (3)
  - Device malfunction [Unknown]
  - Device operational issue [Unknown]
  - Drug dose omission by device [Unknown]

NARRATIVE: CASE EVENT DATE: 20240101
